FAERS Safety Report 6454091-7 (Version None)
Quarter: 2009Q4

REPORT INFORMATION
  Report Type: 
  Country: None (occurrence: None)
  Receive Date: 20091124
  Receipt Date: 20091007
  Transmission Date: 20100525
  Serious: No
  Sender: FDA-Public Use
  Company Number: US-BAYER-200936571NA

PATIENT
  Age: 26 Year
  Sex: Male
  Weight: 79 kg

DRUGS (1)
  1. ULTRAVIST (PHARMACY BULK) [Suspect]
     Indication: COMPUTERISED TOMOGRAM THORAX
     Dosage: TOTAL DAILY DOSE: 96 ML  UNIT DOSE: 500 ML
     Route: 042
     Dates: start: 20091007, end: 20091007

REACTIONS (3)
  - EYE SWELLING [None]
  - NASAL CONGESTION [None]
  - SNEEZING [None]
